FAERS Safety Report 7007631-3 (Version None)
Quarter: 2010Q3

REPORT INFORMATION
  Report Type: 
  Country: None (occurrence: None)
  Receive Date: 20100922
  Receipt Date: 20100913
  Transmission Date: 20110219
  Serious: Yes (Other)
  Sender: FDA-Public Use
  Company Number: FR-PFIZER INC-2010115315

PATIENT
  Age: 80 Year
  Sex: Female

DRUGS (11)
  1. AMLODIPINE [Suspect]
     Dosage: UNK
     Route: 048
     Dates: end: 20100510
  2. LASIX [Suspect]
     Dosage: 20MG/2ML, 2DF XDAY
     Route: 042
     Dates: start: 20100321, end: 20100512
  3. PERINDOPRIL ERBUMINE [Suspect]
     Dosage: 8 MG, 1X/DAY
     Route: 048
     Dates: start: 20100422, end: 20100512
  4. TARGOCID [Suspect]
     Indication: ENDOCARDITIS
     Dosage: 400 MG, 2X/DAY
     Route: 042
     Dates: start: 20100422, end: 20100511
  5. BISOPROLOL FUMARATE [Suspect]
     Route: 048
  6. INIPOMP [Suspect]
     Dosage: 40 MG, 1X/DAY
     Route: 048
     Dates: start: 20100321, end: 20100512
  7. LOVENOX [Suspect]
     Dosage: 1 DF, 1X/DAY
     Route: 058
     Dates: start: 20100505, end: 20100512
  8. FOSINOPRIL SODIUM AND HYDROCHLOROTHIAZIDE [Concomitant]
     Indication: HYPERTENSION
     Dosage: UNK
     Route: 048
     Dates: end: 20100321
  9. HEPARIN SODIUM [Concomitant]
     Dosage: 16000 IU, 1X/DAY
     Route: 042
     Dates: start: 20100419, end: 20100422
  10. VALACYCLOVIR HYDROCHLORIDE [Concomitant]
     Dosage: 2 DF, 1X/DAY
     Route: 048
     Dates: start: 20100424, end: 20100505
  11. KARDEGIC [Concomitant]
     Route: 048

REACTIONS (1)
  - RENAL FAILURE ACUTE [None]
